FAERS Safety Report 4796494-2 (Version None)
Quarter: 2005Q4

REPORT INFORMATION
  Report Type: 
  Country: None (occurrence: None)
  Receive Date: 20051006
  Receipt Date: 20051006
  Transmission Date: 20060501
  Serious: No
  Sender: FDA-Public Use
  Company Number: None

PATIENT
  Age: 81 Year
  Sex: Male

DRUGS (7)
  1. DOCETAXEL [Suspect]
     Indication: OESOPHAGEAL CARCINOMA
     Dosage: 100MG IV Q 3 WKS
     Route: 042
  2. METOPROLOL SUCCINATE [Concomitant]
  3. HYDROCHLOROTHIAZIDE [Concomitant]
  4. ATORVASTATIN [Concomitant]
  5. COLCHICINE [Concomitant]
  6. LANSOPRAZOLE [Concomitant]
  7. ONDANSETRON [Concomitant]

REACTIONS (4)
  - DIARRHOEA [None]
  - NAUSEA [None]
  - PALMAR-PLANTAR ERYTHRODYSAESTHESIA SYNDROME [None]
  - PYREXIA [None]
